FAERS Safety Report 8333652-4 (Version None)
Quarter: 2012Q2

REPORT INFORMATION
  Report Type: 
  Country: None (occurrence: None)
  Receive Date: 20120503
  Receipt Date: 20120425
  Transmission Date: 20120825
  Serious: Yes (Other)
  Sender: FDA-Public Use
  Company Number: MX-SANOFI-AVENTIS-2012SA028525

PATIENT

DRUGS (2)
  1. TAXOTERE [Suspect]
     Route: 042
  2. TAXOTERE [Suspect]
     Route: 042

REACTIONS (3)
  - ERYTHEMA [None]
  - ISCHAEMIA [None]
  - NECROSIS [None]
